FAERS Safety Report 5692974-6 (Version None)
Quarter: 2008Q2

REPORT INFORMATION
  Report Type: 
  Country: None (occurrence: None)
  Receive Date: 20080401
  Receipt Date: 20080401
  Transmission Date: 20081010
  Serious: No
  Sender: FDA-Public Use
  Company Number: None

PATIENT
  Age: 54 Year
  Sex: Male
  Weight: 133.3575 kg

DRUGS (1)
  1. CYMBALTA [Suspect]
     Indication: DEPRESSION
     Dosage: 20MG BID PO
     Route: 048
     Dates: start: 20070625, end: 20080108

REACTIONS (13)
  - BLOOD PRESSURE INCREASED [None]
  - CHILLS [None]
  - DECREASED APPETITE [None]
  - DIZZINESS [None]
  - HAEMATOCRIT ABNORMAL [None]
  - HYPERHIDROSIS [None]
  - INSOMNIA [None]
  - LABORATORY TEST ABNORMAL [None]
  - PAIN [None]
  - PALPITATIONS [None]
  - RED BLOOD CELL COUNT ABNORMAL [None]
  - SEROTONIN SYNDROME [None]
  - WITHDRAWAL SYNDROME [None]
